FAERS Safety Report 13819335 (Version 1)
Quarter: 2017Q3

REPORT INFORMATION
  Report Type: Report from Study
  Country: US (occurrence: US)
  Receive Date: 20170731
  Receipt Date: 20170731
  Transmission Date: 20171127
  Serious: No
  Sender: FDA-Public Use
  Company Number: US-EXELIXIS-CABO-17007895

PATIENT
  Sex: Male
  Weight: 68.27 kg

DRUGS (22)
  1. CEFPODOXIME [Concomitant]
     Active Substance: CEFPODOXIME
  2. LANTUS [Concomitant]
     Active Substance: INSULIN GLARGINE
  3. DIAZEPAM. [Concomitant]
     Active Substance: DIAZEPAM
  4. DILTIAZEM. [Concomitant]
     Active Substance: DILTIAZEM
  5. METOPROLOL. [Concomitant]
     Active Substance: METOPROLOL
  6. CLONIDINE. [Concomitant]
     Active Substance: CLONIDINE
  7. MINOXIDIL. [Concomitant]
     Active Substance: MINOXIDIL
  8. FLUTICASONE. [Concomitant]
     Active Substance: FLUTICASONE
  9. ISOSORBIDE. [Concomitant]
     Active Substance: ISOSORBIDE
  10. SYNTHROID [Concomitant]
     Active Substance: LEVOTHYROXINE SODIUM
  11. AMIODARONE [Concomitant]
     Active Substance: AMIODARONE
  12. ATORVASTATIN [Concomitant]
     Active Substance: ATORVASTATIN
  13. FUROSEMIDE. [Concomitant]
     Active Substance: FUROSEMIDE
  14. VOTRIENT [Concomitant]
     Active Substance: PAZOPANIB HYDROCHLORIDE
  15. TRAMADOL. [Concomitant]
     Active Substance: TRAMADOL
  16. LOSARTAN POTASSIUM. [Concomitant]
     Active Substance: LOSARTAN POTASSIUM
  17. CABOMETYX [Suspect]
     Active Substance: CABOZANTINIB S-MALATE
     Indication: RENAL CANCER
     Dosage: 40 MG, QD
     Route: 048
     Dates: start: 20161226
  18. LATANOPROST. [Concomitant]
     Active Substance: LATANOPROST
  19. TOPROL XL [Concomitant]
     Active Substance: METOPROLOL SUCCINATE
  20. CEPHALEXIN. [Concomitant]
     Active Substance: CEPHALEXIN
  21. AMLODIPINE [Concomitant]
     Active Substance: AMLODIPINE BESYLATE
  22. DORZOLAMIDE [Concomitant]
     Active Substance: DORZOLAMIDE

REACTIONS (3)
  - Genital rash [Unknown]
  - Fluid retention [Unknown]
  - Stomatitis [Unknown]
